FAERS Safety Report 12729133 (Version 2)
Quarter: 2016Q3

REPORT INFORMATION
  Report Type: Spontaneous
  Country: US (occurrence: US)
  Receive Date: 20160909
  Receipt Date: 20160912
  Transmission Date: 20161109
  Serious: Yes (Death, Other)
  Sender: FDA-Public Use
  Company Number: US-TEVA-2015-22749

PATIENT
  Age: 52 Year
  Sex: Female

DRUGS (1)
  1. FENTANYL. [Suspect]
     Active Substance: FENTANYL
     Indication: CANCER PAIN
     Dosage: 50 MCG/HR, EVERY 3 DAYS
     Route: 062
     Dates: start: 201509

REACTIONS (2)
  - Appendix cancer [Fatal]
  - Drug ineffective [Unknown]
